FAERS Safety Report 18677875 (Version 1)
Quarter: 2020Q4

REPORT INFORMATION
  Report Type: Spontaneous
  Country: DK (occurrence: DK)
  Receive Date: 20201229
  Receipt Date: 20201229
  Transmission Date: 20210114
  Serious: Yes (Disabling)
  Sender: FDA-Public Use
  Company Number: NVSC2020DK338537

PATIENT
  Age: 47 Year
  Sex: Female

DRUGS (4)
  1. SKINOREN [Concomitant]
     Active Substance: AZELAIC ACID
     Indication: SKIN DISORDER
     Dosage: UNK
     Route: 065
     Dates: start: 20200206
  2. BIOCLAVID [Concomitant]
     Active Substance: AMOXICILLIN\CLAVULANIC ACID
     Indication: SOFT TISSUE INFECTION
     Dosage: UNK
     Route: 065
     Dates: start: 20200626
  3. KETOCONAZOLE. [Concomitant]
     Active Substance: KETOCONAZOLE
     Indication: DANDRUFF
     Dosage: UNK
     Route: 065
     Dates: start: 20201028
  4. COSENTYX [Suspect]
     Active Substance: SECUKINUMAB
     Indication: PSORIASIS
     Dosage: 300 MG, QMO (STRENGTH: 150 MG)
     Route: 058
     Dates: start: 20200813, end: 20201209

REACTIONS (2)
  - Depressed mood [Not Recovered/Not Resolved]
  - Discouragement [Not Recovered/Not Resolved]

NARRATIVE: CASE EVENT DATE: 202011
